FAERS Safety Report 20349976 (Version 1)
Quarter: 2022Q1

REPORT INFORMATION
  Report Type: Spontaneous
  Country: US (occurrence: US)
  Receive Date: 20220119
  Receipt Date: 20220119
  Transmission Date: 20220424
  Serious: No
  Sender: FDA-Public Use
  Company Number: US-LUPIN PHARMACEUTICALS INC.-2022-00442

PATIENT
  Age: 25 Year
  Sex: Male

DRUGS (1)
  1. TRIAMCINOLONE [Suspect]
     Active Substance: TRIAMCINOLONE
     Indication: Chronic pigmented purpura
     Dosage: UNK UNK, BID (0.1% OINTMENT)
     Route: 061

REACTIONS (1)
  - Drug ineffective [Unknown]
